FAERS Safety Report 5460584-1 (Version None)
Quarter: 2007Q3

REPORT INFORMATION
  Report Type: 
  Country: None (occurrence: None)
  Receive Date: 20070919
  Receipt Date: 20070907
  Transmission Date: 20080115
  Serious: Yes (Other)
  Sender: FDA-Public Use
  Company Number: CH-PFIZER INC-2007074762

PATIENT
  Age: 21 Year
  Sex: Female

DRUGS (2)
  1. SOLU-MEDROL [Suspect]
     Indication: MULTIPLE SCLEROSIS
     Route: 042
  2. MITOXANTRONE [Concomitant]
     Indication: MULTIPLE SCLEROSIS

REACTIONS (1)
  - ANAPHYLACTIC REACTION [None]
